FAERS Safety Report 4933787-X (Version None)
Quarter: 2006Q1

REPORT INFORMATION
  Report Type: 
  Country: None (occurrence: None)
  Receive Date: 20060306
  Receipt Date: 20050816
  Transmission Date: 20060701
  Serious: Yes (Hospitalization, Disabling)
  Sender: FDA-Public Use
  Company Number: US-MERCK-0508USA03115

PATIENT
  Age: 51 Year
  Sex: Male
  Weight: 114 kg

DRUGS (3)
  1. VIOXX [Suspect]
     Indication: ANALGESIC EFFECT
     Route: 048
     Dates: start: 20000905, end: 20020827
  2. VIOXX [Suspect]
     Route: 048
     Dates: start: 20000905, end: 20020827
  3. NITROGLYCERIN [Suspect]
     Route: 065

REACTIONS (19)
  - ADVERSE DRUG REACTION [None]
  - ANHEDONIA [None]
  - ARTERIAL OCCLUSIVE DISEASE [None]
  - CARDIAC ARREST [None]
  - CARDIOVASCULAR DISORDER [None]
  - CHEST PAIN [None]
  - CONTUSION [None]
  - CORONARY ARTERY RESTENOSIS [None]
  - CORONARY ARTERY STENOSIS [None]
  - DEPRESSION [None]
  - DYSPNOEA [None]
  - EJECTION FRACTION DECREASED [None]
  - INCREASED TENDENCY TO BRUISE [None]
  - INSOMNIA [None]
  - MYOCARDIAL INFARCTION [None]
  - OEDEMA PERIPHERAL [None]
  - ORGAN FAILURE [None]
  - PALPITATIONS [None]
  - SEXUAL DYSFUNCTION [None]
